FAERS Safety Report 17271774 (Version 1)
Quarter: 2020Q1

REPORT INFORMATION
  Report Type: Report from Study
  Country: US (occurrence: US)
  Receive Date: 20200115
  Receipt Date: 20200115
  Transmission Date: 20200409
  Serious: Yes (Hospitalization)
  Sender: FDA-Public Use
  Company Number: US-EMD SERONO-9140518

PATIENT
  Sex: Male

DRUGS (2)
  1. REBIF [Suspect]
     Active Substance: INTERFERON BETA-1A
     Indication: MULTIPLE SCLEROSIS
     Route: 058
     Dates: start: 20181205, end: 20190221
  2. REBIF [Suspect]
     Active Substance: INTERFERON BETA-1A
     Dosage: ON AN UNKNWON DATE THERAPY WAS RESTARTED
     Route: 058

REACTIONS (1)
  - Hospitalisation [Unknown]
